FAERS Safety Report 7264133-7 (Version None)
Quarter: 2011Q1

REPORT INFORMATION
  Report Type: 
  Country: None (occurrence: None)
  Receive Date: 20110131
  Receipt Date: 20110120
  Transmission Date: 20110831
  Serious: Yes (Other)
  Sender: FDA-Public Use
  Company Number: US-PFIZER INC-2011012304

PATIENT
  Sex: Female
  Weight: 110 kg

DRUGS (2)
  1. LYRICA [Suspect]
     Indication: FIBROMYALGIA
     Dosage: 150 MG, 2X/DAY
     Route: 048
     Dates: start: 20090101, end: 20110101
  2. CYMBALTA [Concomitant]
     Indication: DEPRESSION

REACTIONS (3)
  - PANIC ATTACK [None]
  - WITHDRAWAL SYNDROME [None]
  - PALPITATIONS [None]
